FAERS Safety Report 6936477-7 (Version None)
Quarter: 2010Q3

REPORT INFORMATION
  Report Type: 
  Country: None (occurrence: None)
  Receive Date: 20100823
  Receipt Date: 20100819
  Transmission Date: 20110219
  Serious: Yes (Hospitalization)
  Sender: FDA-Public Use
  Company Number: CN-ROCHE-691591

PATIENT
  Sex: Male
  Weight: 56 kg

DRUGS (2)
  1. PEGINTERFERON ALFA-2A [Suspect]
     Dosage: DOSE 180 UG/0.5 ML.  TEMPORARILY INTERRUPTED
     Route: 042
     Dates: start: 20090730, end: 20100305
  2. ENTECAVIR [Suspect]
     Dosage: LAST DOSE PRIOR TO SAE 17 SEP 2009
     Route: 048
     Dates: start: 20090730

REACTIONS (2)
  - MYOCARDIAL ISCHAEMIA [None]
  - VIRAL MYOCARDITIS [None]
